FAERS Safety Report 24197131 (Version 1)
Quarter: 2024Q3

REPORT INFORMATION
  Report Type: Spontaneous
  Country: KR (occurrence: KR)
  Receive Date: 20240810
  Receipt Date: 20240810
  Transmission Date: 20241016
  Serious: Yes (Life-Threatening, Hospitalization)
  Sender: BAXTER
  Company Number: KR-BAXTER-2024BAX022542

PATIENT
  Age: 51 Year
  Sex: Female
  Weight: 55 kg

DRUGS (21)
  1. CYCLOPHOSPHAMIDE [Suspect]
     Active Substance: CYCLOPHOSPHAMIDE
     Indication: Diffuse large B-cell lymphoma
     Dosage: 750 MILLIGRAM/SQ. METER ON DAYS 1-5 OF THE CYCLE
     Route: 065
     Dates: start: 20220408
  2. CYCLOPHOSPHAMIDE [Suspect]
     Active Substance: CYCLOPHOSPHAMIDE
     Dosage: 400 MILLIGRAM/SQ. METER ON DAYS 1-5 OF THE CYCLE
     Route: 065
     Dates: start: 20220603
  3. DOXORUBICIN [Suspect]
     Active Substance: DOXORUBICIN
     Indication: Diffuse large B-cell lymphoma
     Dosage: 50 MILLIGRAM/SQ. METER ON DAYS 1-5 OF THE CYCLE
     Route: 042
     Dates: start: 20220408
  4. DOXORUBICIN [Suspect]
     Active Substance: DOXORUBICIN
     Dosage: 40 MILLIGRAM/SQ. METER ON DAYS 1-5 OF THE CYCLE
     Route: 042
     Dates: start: 20220603
  5. RITUXIMAB [Suspect]
     Active Substance: RITUXIMAB
     Indication: Diffuse large B-cell lymphoma
     Dosage: 375 MILLIGRAM/SQ. METER ON DAYS 1-5 OF THE CYCLE
     Route: 065
     Dates: start: 20220408
  6. RITUXIMAB [Suspect]
     Active Substance: RITUXIMAB
     Dosage: UNK
     Route: 065
     Dates: start: 20220603
  7. VINCRISTINE SULFATE [Suspect]
     Active Substance: VINCRISTINE SULFATE
     Indication: Diffuse large B-cell lymphoma
     Dosage: 1.4 MILLIGRAM/SQ. METER ON DAYS 1-5 OF THE CYCLE
     Route: 042
     Dates: start: 20220408
  8. VINCRISTINE SULFATE [Suspect]
     Active Substance: VINCRISTINE SULFATE
     Dosage: 1 MILLIGRAM/SQ. METER
     Route: 042
     Dates: start: 20220603
  9. PREDNISOLONE [Suspect]
     Active Substance: PREDNISOLONE
     Indication: Diffuse large B-cell lymphoma
     Dosage: 100 MILLIGRAM CD1-D5 (ON DAYS 1-5 OF THE CYCLE)
     Route: 042
     Dates: start: 20220408
  10. PREDNISOLONE [Suspect]
     Active Substance: PREDNISOLONE
     Dosage: UNK
     Route: 042
     Dates: start: 20220603
  11. LENALIDOMIDE [Suspect]
     Active Substance: LENALIDOMIDE
     Indication: Diffuse large B-cell lymphoma
     Dosage: 25 MG
     Route: 048
     Dates: start: 20220408, end: 20220506
  12. LENALIDOMIDE [Suspect]
     Active Substance: LENALIDOMIDE
     Dosage: UNK
     Route: 065
     Dates: start: 20220603
  13. TAFASITAMAB [Suspect]
     Active Substance: TAFASITAMAB
     Indication: Diffuse large B-cell lymphoma
     Dosage: 654 MG
     Route: 042
     Dates: start: 20220408, end: 20220506
  14. TAFASITAMAB [Suspect]
     Active Substance: TAFASITAMAB
     Dosage: UNK
     Route: 065
     Dates: start: 20220603
  15. SANCUSO [Concomitant]
     Active Substance: GRANISETRON
     Indication: Prophylaxis of nausea and vomiting
     Dosage: 34.3 MG
     Route: 062
     Dates: start: 20220408
  16. VASOPRESSIN [Concomitant]
     Active Substance: VASOPRESSIN
     Indication: Hypotension
     Dosage: UNK
     Route: 042
     Dates: start: 20220509, end: 20220509
  17. Norpin [Concomitant]
     Indication: Hypotension
     Dosage: UNK
     Route: 042
     Dates: start: 20220509
  18. FENTANYL [Concomitant]
     Active Substance: FENTANYL\FENTANYL CITRATE
     Indication: Pain
     Dosage: 288 UG
     Route: 062
     Dates: start: 20220509
  19. RAPISON [Concomitant]
     Indication: Adrenal insufficiency
     Dosage: 25 MG
     Route: 048
     Dates: start: 20220512
  20. GRANISETRON [Concomitant]
     Active Substance: GRANISETRON
     Dosage: UNK
     Dates: start: 20220408
  21. ALBUMIN HUMAN [Concomitant]
     Active Substance: ALBUMIN HUMAN
     Indication: Hypoalbuminaemia
     Dosage: 20 PERCENT 100 ML (MILLILITERS)
     Route: 042
     Dates: start: 20220508, end: 20220516

REACTIONS (3)
  - Neutropenic sepsis [Recovering/Resolving]
  - Diarrhoea [Unknown]
  - Pyrexia [Unknown]

NARRATIVE: CASE EVENT DATE: 20220505
